FAERS Safety Report 8030602-5 (Version None)
Quarter: 2012Q1

REPORT INFORMATION
  Report Type: 
  Country: None (occurrence: None)
  Receive Date: 20120109
  Receipt Date: 20120109
  Transmission Date: 20120608
  Serious: Yes (Hospitalization)
  Sender: FDA-Public Use
  Company Number: IT-SANOFI-AVENTIS-2011SA072562

PATIENT
  Age: 91 Year
  Sex: Female

DRUGS (11)
  1. LANSOPRAZOLE [Concomitant]
     Route: 048
  2. LASIX [Concomitant]
     Route: 042
  3. ARMODAFINIL [Concomitant]
     Route: 065
  4. PANCREX [Concomitant]
     Route: 065
  5. VALIUM [Concomitant]
     Route: 048
  6. TAPAZOLE [Concomitant]
     Route: 048
  7. ENALAPRIL MALEATE [Concomitant]
     Route: 048
  8. ENOXAPARIN SODIUM [Suspect]
     Indication: ACUTE CORONARY SYNDROME
     Route: 058
     Dates: start: 20111019, end: 20111021
  9. CEFTRIAXONE [Suspect]
     Indication: PNEUMONIA
     Route: 042
     Dates: start: 20111019, end: 20111021
  10. ASPIRIN [Concomitant]
     Route: 065
  11. TRINIPLAS [Concomitant]
     Route: 062

REACTIONS (2)
  - HYPERTRANSAMINASAEMIA [None]
  - RENAL FAILURE ACUTE [None]
